FAERS Safety Report 6405236-6 (Version None)
Quarter: 2009Q4

REPORT INFORMATION
  Report Type: 
  Country: None (occurrence: None)
  Receive Date: 20091019
  Receipt Date: 20090930
  Transmission Date: 20100525
  Serious: No
  Sender: FDA-Public Use
  Company Number: US-ALEXION-A200900798

PATIENT
  Sex: Male

DRUGS (4)
  1. SOLIRIS [Suspect]
     Dosage: 600 MG, SINGLE
     Dates: start: 20090126, end: 20090126
  2. SOLIRIS [Suspect]
     Dosage: 600 MG, QW
     Dates: start: 20090201, end: 20090301
  3. SOLIRIS [Suspect]
     Dosage: 900 MG, QWK
     Dates: start: 20090301
  4. SOLIRIS [Suspect]
     Dosage: UNK

REACTIONS (3)
  - DRY SKIN [None]
  - ERYTHEMA [None]
  - HEADACHE [None]
